FAERS Safety Report 15525686 (Version 2)
Quarter: 2019Q1

REPORT INFORMATION
  Report Type: Report from Study
  Country: TW (occurrence: TW)
  Receive Date: 20181018
  Receipt Date: 20190314
  Transmission Date: 20190417
  Serious: Yes (Hospitalization)
  Sender: FDA-Public Use
  Company Number: TW-UCBSA-2018045375

PATIENT
  Age: 46 Year
  Sex: Male
  Weight: 88 kg

DRUGS (2)
  1. ETORICOXIB. [Concomitant]
     Active Substance: ETORICOXIB
     Indication: ANKYLOSING SPONDYLITIS
     Dosage: 60 MG, ONCE DAILY (QD)
     Route: 048
     Dates: start: 20161018
  2. CERTOLIZUMAB PEGOL [Suspect]
     Active Substance: CERTOLIZUMAB PEGOL
     Indication: AXIAL SPONDYLOARTHRITIS
     Dosage: 200 MG, EV 2 WEEKS OR 200 MG, EV 4 WEEKS AS COMPARED TO PLACEBO
     Route: 058
     Dates: start: 20171120, end: 20180925

REACTIONS (1)
  - Anal abscess [Recovered/Resolved]

NARRATIVE: CASE EVENT DATE: 20180926
